FAERS Safety Report 20021260 (Version 1)
Quarter: 2021Q4

REPORT INFORMATION
  Report Type: Spontaneous
  Country: RO (occurrence: RO)
  Receive Date: 20211101
  Receipt Date: 20211101
  Transmission Date: 20220303
  Serious: Yes (Other)
  Sender: FDA-Public Use
  Company Number: RO-TEVA-2021-RO-1970739

PATIENT
  Sex: Female

DRUGS (1)
  1. COPAXONE [Suspect]
     Active Substance: GLATIRAMER ACETATE
     Indication: Relapsing-remitting multiple sclerosis
     Dosage: 20 MILLIGRAM/MILLILITERS DAILY;
     Route: 065
     Dates: start: 2004

REACTIONS (6)
  - Optic neuritis [Recovered/Resolved with Sequelae]
  - Multiple sclerosis relapse [Recovered/Resolved with Sequelae]
  - Apnoea [Unknown]
  - Motor dysfunction [Recovered/Resolved with Sequelae]
  - Headache [Recovered/Resolved with Sequelae]
  - Immediate post-injection reaction [Unknown]

NARRATIVE: CASE EVENT DATE: 20170101
